FAERS Safety Report 4738923-6 (Version None)
Quarter: 2005Q3

REPORT INFORMATION
  Report Type: 
  Country: None (occurrence: None)
  Receive Date: 20050801
  Receipt Date: 20050516
  Transmission Date: 20060218
  Serious: Yes (Hospitalization, Other)
  Sender: FDA-Public Use
  Company Number: 213317

PATIENT
  Age: 45 Year
  Sex: Male
  Weight: 83.9 kg

DRUGS (3)
  1. RITUXAN [Suspect]
     Indication: CHRONIC LYMPHOCYTIC LEUKAEMIA
     Dosage: 375 MG/M2, 3/WEEK, INTRAVENOUS
     Route: 042
     Dates: start: 20050307, end: 20050310
  2. FLEXERIL [Concomitant]
  3. ARANESP [Concomitant]

REACTIONS (1)
  - SERUM SICKNESS [None]
